FAERS Safety Report 5638948-2 (Version None)
Quarter: 2008Q1

REPORT INFORMATION
  Report Type: 
  Country: None (occurrence: None)
  Receive Date: 20080225
  Receipt Date: 20080225
  Transmission Date: 20080703
  Serious: Yes (Other)
  Sender: FDA-Public Use
  Company Number: None

PATIENT
  Age: 46 Year
  Sex: Female
  Weight: 46.2669 kg

DRUGS (1)
  1. CORTROSYN [Suspect]
     Indication: BLOOD CORTICOTROPHIN
     Dosage: 1X IM INECTION
     Route: 030
     Dates: start: 20080212, end: 20080212

REACTIONS (14)
  - ASTHENIA [None]
  - BLOOD PRESSURE INCREASED [None]
  - DYSKINESIA [None]
  - FEELING ABNORMAL [None]
  - FOREIGN BODY TRAUMA [None]
  - HOT FLUSH [None]
  - HYPOGLYCAEMIA [None]
  - PALATAL DISORDER [None]
  - PALPITATIONS [None]
  - PHARYNGEAL DISORDER [None]
  - PHARYNGEAL OEDEMA [None]
  - PHARYNGOLARYNGEAL PAIN [None]
  - TACHYCARDIA [None]
  - TREMOR [None]
